FAERS Safety Report 10923605 (Version 2)
Quarter: 2015Q2

REPORT INFORMATION
  Report Type: Spontaneous
  Country: US (occurrence: US)
  Receive Date: 20150318
  Receipt Date: 20150526
  Transmission Date: 20150821
  Serious: Yes (Other)
  Sender: FDA-Public Use
  Company Number: US-JNJFOC-20140410963

PATIENT
  Age: 34 Year
  Sex: Male

DRUGS (7)
  1. HALDOL [Suspect]
     Active Substance: HALOPERIDOL
     Indication: SCHIZOPHRENIA
     Route: 030
  2. HALDOL [Suspect]
     Active Substance: HALOPERIDOL
     Indication: SCHIZOPHRENIA
     Route: 030
  3. HALDOL DECANOATE [Suspect]
     Active Substance: HALOPERIDOL DECANOATE
     Indication: SCHIZOPHRENIA
     Route: 030
  4. HALDOL DECANOATE [Suspect]
     Active Substance: HALOPERIDOL DECANOATE
     Indication: SCHIZOPHRENIA
     Route: 030
  5. HALDOL DECANOATE [Suspect]
     Active Substance: HALOPERIDOL DECANOATE
     Indication: SCHIZOPHRENIA
     Route: 030
  6. HALDOL [Suspect]
     Active Substance: HALOPERIDOL
     Indication: SCHIZOPHRENIA
     Route: 048
  7. HALDOL [Suspect]
     Active Substance: HALOPERIDOL
     Indication: SCHIZOPHRENIA
     Route: 048

REACTIONS (1)
  - Tardive dyskinesia [Unknown]
